FAERS Safety Report 14528379 (Version 1)
Quarter: 2018Q1

REPORT INFORMATION
  Report Type: Report from Study
  Country: IE (occurrence: IE)
  Receive Date: 20180214
  Receipt Date: 20180214
  Transmission Date: 20180509
  Serious: Yes (Other)
  Sender: FDA-Public Use
  Company Number: IE-BRISTOL-MYERS SQUIBB COMPANY-BMS-2018-013503

PATIENT
  Age: 73 Year
  Sex: Male
  Weight: 131 kg

DRUGS (17)
  1. METFORMIN HYDROCHLORIDE. [Suspect]
     Active Substance: METFORMIN HYDROCHLORIDE
     Indication: PRODUCT USED FOR UNKNOWN INDICATION
     Dosage: UNIT DOSE WAS ONE UNSPECIFIED UNITS.
     Route: 065
  2. SALAMOL                            /00139501/ [Concomitant]
     Indication: PRODUCT USED FOR UNKNOWN INDICATION
     Dosage: 100 ?G, UNK AS DIRECTED
     Route: 065
  3. SERETIDE [Concomitant]
     Active Substance: FLUTICASONE PROPIONATE\SALMETEROL XINAFOATE
     Indication: PRODUCT USED FOR UNKNOWN INDICATION
     Dosage: 1 DF=2, BID
     Route: 065
  4. JANUMET [Suspect]
     Active Substance: METFORMIN HYDROCHLORIDE\SITAGLIPTIN PHOSPHATE
     Indication: TYPE 2 DIABETES MELLITUS
     Dosage: 1 DF, BID(2 DF,1 0)
     Route: 048
     Dates: start: 20150626
  5. PARACETAMOL [Concomitant]
     Active Substance: ACETAMINOPHEN
     Indication: PRODUCT USED FOR UNKNOWN INDICATION
     Route: 065
  6. BETNOVATE [Concomitant]
     Active Substance: BETAMETHASONE
     Indication: PRODUCT USED FOR UNKNOWN INDICATION
     Dosage: AS DIRECTED
     Route: 065
  7. FOSAMAX [Concomitant]
     Active Substance: ALENDRONATE SODIUM
     Indication: PRODUCT USED FOR UNKNOWN INDICATION
     Dosage: 70 MG, QWK
     Route: 065
  8. COMBODART [Concomitant]
     Active Substance: DUTASTERIDE\TAMSULOSIN
     Indication: PRODUCT USED FOR UNKNOWN INDICATION
     Dosage: 0.5 MG, QD
     Route: 065
  9. FORXIGA [Concomitant]
     Active Substance: DAPAGLIFLOZIN
     Indication: PRODUCT USED FOR UNKNOWN INDICATION
     Dosage: 10 MG, QD
     Route: 065
  10. ACETYLSALICYLIC ACID [Concomitant]
     Active Substance: ASPIRIN
     Indication: PRODUCT USED FOR UNKNOWN INDICATION
     Dosage: 75 MG, QD
     Route: 065
  11. DESUNIN [Concomitant]
     Active Substance: CHOLECALCIFEROL
     Indication: PRODUCT USED FOR UNKNOWN INDICATION
     Dosage: 800 IU, QD
     Route: 065
  12. ATORVA [Concomitant]
     Indication: PRODUCT USED FOR UNKNOWN INDICATION
     Dosage: 20 MG, QD
     Route: 065
  13. KENTERA [Suspect]
     Active Substance: OXYBUTYNIN
     Indication: PRODUCT USED FOR UNKNOWN INDICATION
     Route: 065
  14. DIAMICRON [Concomitant]
     Active Substance: GLICLAZIDE
     Indication: PRODUCT USED FOR UNKNOWN INDICATION
     Dosage: 60 MG, QD
     Route: 065
  15. CANDESARTAN. [Concomitant]
     Active Substance: CANDESARTAN
     Indication: PRODUCT USED FOR UNKNOWN INDICATION
     Dosage: 8 MG, QD
     Route: 065
  16. COMBODART [Concomitant]
     Active Substance: DUTASTERIDE\TAMSULOSIN
     Indication: PRODUCT USED FOR UNKNOWN INDICATION
     Dosage: 0.4 MG, QD
     Route: 065
  17. BISOPROLOL [Concomitant]
     Active Substance: BISOPROLOL
     Indication: PRODUCT USED FOR UNKNOWN INDICATION
     Dosage: 1.25 MG, QD
     Route: 065

REACTIONS (12)
  - Diabetic neuropathy [Unknown]
  - Pruritus [Unknown]
  - Blood glucose increased [Unknown]
  - Sensory loss [Unknown]
  - Pulse abnormal [Unknown]
  - Hypoglycaemia [Unknown]
  - Rash [Unknown]
  - Eczema [Unknown]
  - Glycosylated haemoglobin [Unknown]
  - Liver function test abnormal [Unknown]
  - Chronic obstructive pulmonary disease [Unknown]
  - Feeling hot [Unknown]

NARRATIVE: CASE EVENT DATE: 20170307
